FAERS Safety Report 16610233 (Version 1)
Quarter: 2019Q3

REPORT INFORMATION
  Report Type: Spontaneous
  Country: US (occurrence: US)
  Receive Date: 20190721
  Receipt Date: 20190721
  Transmission Date: 20191004
  Serious: Yes (Other)
  Sender: FDA-Public Use
  Company Number: None

PATIENT
  Age: 64 Year
  Sex: Female
  Weight: 103.5 kg

DRUGS (7)
  1. CARDIAZ [Concomitant]
  2. INSULIN PUMP [Concomitant]
     Active Substance: INSULIN NOS
  3. LASIX [Concomitant]
     Active Substance: FUROSEMIDE
  4. AROMATASR [Concomitant]
  5. IBRANCE [Suspect]
     Active Substance: PALBOCICLIB
     Indication: NODULE
     Dosage: ?          QUANTITY:1 CAPSULE(S);?
     Route: 048
     Dates: start: 20190422, end: 20190710
  6. METOPROLOL. [Concomitant]
     Active Substance: METOPROLOL
  7. LISINOPRIL. [Concomitant]
     Active Substance: LISINOPRIL

REACTIONS (2)
  - Lymphadenopathy [None]
  - Nodule [None]

NARRATIVE: CASE EVENT DATE: 20190620
